FAERS Safety Report 23351412 (Version 1)
Quarter: 2023Q4

REPORT INFORMATION
  Report Type: Spontaneous
  Country: US (occurrence: None)
  Receive Date: 20231229
  Receipt Date: 20231229
  Transmission Date: 20240110
  Serious: Yes (Hospitalization)
  Sender: FDA-Public Use
  Company Number: None

PATIENT
  Age: 59 Year
  Sex: Male
  Weight: 98.18 kg

DRUGS (1)
  1. CISPLATIN [Suspect]
     Active Substance: CISPLATIN
     Dates: end: 20231206

REACTIONS (4)
  - Dehydration [None]
  - Hypophagia [None]
  - Electrolyte depletion [None]
  - Gastrostomy [None]

NARRATIVE: CASE EVENT DATE: 20231213
